FAERS Safety Report 10956250 (Version 1)
Quarter: 2015Q1

REPORT INFORMATION
  Report Type: Spontaneous
  Country: TR (occurrence: None)
  Receive Date: 20150324
  Receipt Date: 20150324
  Transmission Date: 20150721
  Serious: Yes (Other)
  Sender: FDA-Public Use
  Company Number: 2015PRN00011

PATIENT
  Age: 45 Year
  Sex: Female

DRUGS (2)
  1. LEVETIRACTAM [Suspect]
     Active Substance: LEVETIRACETAM
     Indication: SEIZURE
  2. UNSPECIFIED ANTIBIOTICS (UNSPECIFIED) [Concomitant]

REACTIONS (2)
  - B-lymphocyte count decreased [None]
  - Hypogammaglobulinaemia [None]
